FAERS Safety Report 10216047 (Version 2)
Quarter: 2014Q2

REPORT INFORMATION
  Report Type: Spontaneous
  Country: CH (occurrence: CH)
  Receive Date: 20140604
  Receipt Date: 20140604
  Transmission Date: 20141212
  Serious: Yes (Hospitalization)
  Sender: FDA-Public Use
  Company Number: CH-ABBVIE-14P-151-1236609-00

PATIENT
  Sex: Male

DRUGS (1)
  1. DUODOPA [Suspect]
     Indication: PARKINSON^S DISEASE
     Dosage: MORNING DOSE: 10.0 MLCONTINOUS RAT: 4.4 ML/HEXTRA DOSE: 1.5 ML
     Route: 050
     Dates: start: 201209

REACTIONS (3)
  - Constipation [Recovered/Resolved]
  - Intestinal dilatation [Unknown]
  - Rectal tenesmus [Unknown]
